FAERS Safety Report 5297042-3 (Version None)
Quarter: 2007Q1

REPORT INFORMATION
  Report Type: 
  Country: None (occurrence: None)
  Receive Date: 20070201
  Receipt Date: 20061003
  Transmission Date: 20070707
  Serious: No
  Sender: FDA-Public Use
  Company Number: 2006PV022453

PATIENT
  Age: 65 Year
  Sex: Female
  Weight: 92.5338 kg

DRUGS (7)
  1. BYETTA [Suspect]
     Indication: DIABETES MELLITUS NON-INSULIN-DEPENDENT
     Dosage: 5 MCG; BID; SC
     Route: 058
     Dates: start: 20060923
  2. METFORMIN HCL [Concomitant]
  3. ACTOS [Concomitant]
  4. CADUET [Concomitant]
  5. COZAAR [Concomitant]
  6. ASPIRIN [Concomitant]
  7. ALBUTEROL [Concomitant]

REACTIONS (2)
  - HEART RATE INCREASED [None]
  - WEIGHT DECREASED [None]
